FAERS Safety Report 15204182 (Version 2)
Quarter: 2018Q3

REPORT INFORMATION
  Report Type: Report from Study
  Country: CN (occurrence: CN)
  Receive Date: 20180726
  Receipt Date: 20180810
  Transmission Date: 20181010
  Serious: Yes (Hospitalization)
  Sender: FDA-Public Use
  Company Number: CN-AMGEN-CHNCT2018040538

PATIENT
  Age: 45 Year
  Sex: Male
  Weight: 81 kg

DRUGS (13)
  1. CARFILZOMIB [Suspect]
     Active Substance: CARFILZOMIB
     Indication: PLASMA CELL MYELOMA
     Dosage: 54 MG, PER CHEMO REGIM
     Route: 042
     Dates: start: 20180213
  2. PHOSPHOCREATINE SODIUM [Concomitant]
     Active Substance: PHOSPHOCREATINE SODIUM
     Dosage: 1 G, UNK
     Route: 042
     Dates: start: 20180213, end: 20180316
  3. SODIUM CHLORIDE. [Concomitant]
     Active Substance: SODIUM CHLORIDE
     Dosage: 250 MG AND 250 ML, UNK
     Route: 042
     Dates: start: 20180213, end: 20180301
  4. FLUCONAZOLE. [Concomitant]
     Active Substance: FLUCONAZOLE
     Dosage: 0.15 G, UNK
     Route: 048
     Dates: start: 20180213
  5. CALCITRIOL. [Concomitant]
     Active Substance: CALCITRIOL
     Dosage: 0.25 MUG, UNK
     Route: 048
     Dates: start: 20180203
  6. ZOLEDRONIC ACID [Concomitant]
     Active Substance: ZOLEDRONIC ACID
     Dosage: 4 MG, UNK
     Route: 042
     Dates: start: 20180228, end: 20180228
  7. MECOBALAMIN [Concomitant]
     Active Substance: METHYLCOBALAMIN
     Dosage: 0.5 MG TO 3 MG, UNK
     Dates: start: 20180203
  8. SODIUM BICARBONATE. [Concomitant]
     Active Substance: SODIUM BICARBONATE
     Dosage: 50 ML, UNK
     Route: 042
     Dates: start: 20180213, end: 20180316
  9. DEXAMETHASONE. [Suspect]
     Active Substance: DEXAMETHASONE
     Indication: PLASMA CELL MYELOMA
     Dosage: 20 MG, PER CHEMO REGIM
     Route: 042
     Dates: start: 20180213
  10. FAMCICLOVIR. [Concomitant]
     Active Substance: FAMCICLOVIR
     Indication: ANTIVIRAL TREATMENT
     Dosage: 0.25 G, TID
     Route: 048
     Dates: start: 20180213
  11. TROPISETRON HYDROCHLORIDE [Concomitant]
     Active Substance: TROPISETRON HYDROCHLORIDE
     Dosage: 100 ML, UNK
     Route: 042
     Dates: start: 20180213, end: 20180316
  12. GLUTATHIONE [Concomitant]
     Active Substance: GLUTATHIONE
     Dosage: 2.4 G, UNK
     Route: 042
     Dates: start: 20180213, end: 20180316
  13. CALTRATE [Concomitant]
     Active Substance: CALCIUM CARBONATE
     Dosage: 600 MG, UNK
     Route: 048
     Dates: start: 20180214

REACTIONS (1)
  - Myolipoma [Not Recovered/Not Resolved]

NARRATIVE: CASE EVENT DATE: 20180303
